FAERS Safety Report 7301731-6 (Version None)
Quarter: 2011Q1

REPORT INFORMATION
  Report Type: 
  Country: None (occurrence: None)
  Receive Date: 20110218
  Receipt Date: 20110214
  Transmission Date: 20110831
  Serious: Yes (Hospitalization, Congenital Anomaly)
  Sender: FDA-Public Use
  Company Number: A0687254A

PATIENT
  Sex: Male
  Weight: 3.5 kg

DRUGS (6)
  1. KEFLEX [Concomitant]
     Route: 064
     Dates: start: 20050201
  2. VITAMIN AND MINERAL PRENATAL SUPPLEMENT W/ FOLIC ACID CAP [Concomitant]
  3. ZOLOFT [Concomitant]
  4. VICODIN [Concomitant]
     Dates: start: 20050213
  5. PAROXETINE HYDROCHLORIDE [Suspect]
     Indication: ANXIETY
     Dosage: 20MG PER DAY
     Route: 064
     Dates: start: 20010101
  6. INSULIN [Concomitant]

REACTIONS (7)
  - LUNG DISORDER [None]
  - ATRIAL SEPTAL DEFECT [None]
  - DRUG EXPOSURE DURING PREGNANCY [None]
  - CHORDEE [None]
  - NEONATAL TACHYPNOEA [None]
  - HYPOSPADIAS [None]
  - CARDIOMEGALY [None]
